FAERS Safety Report 4818265-0 (Version None)
Quarter: 2005Q4

REPORT INFORMATION
  Report Type: 
  Country: None (occurrence: None)
  Receive Date: 20051031
  Receipt Date: 20051020
  Transmission Date: 20060501
  Serious: Yes (Hospitalization, Other)
  Sender: FDA-Public Use
  Company Number: HQWYE742702DEC04

PATIENT
  Age: 66 Year
  Sex: Female

DRUGS (4)
  1. RAPAMUNE [Suspect]
     Indication: PROPHYLAXIS AGAINST TRANSPLANT REJECTION
     Dosage: 5 MG 1X PER 1 DAY,ORAL
     Route: 048
     Dates: start: 20041109, end: 20041118
  2. CORTICOSTEROIDS (CORTICOSTEROIDS, ) [Suspect]
     Indication: PROPHYLAXIS AGAINST TRANSPLANT REJECTION
     Dosage: ORAL
     Route: 048
  3. TACROLIMUS (TACROLIMUS, 0) [Suspect]
     Indication: PROPHYLAXIS AGAINST TRANSPLANT REJECTION
     Dosage: ORAL
     Route: 048
  4. ZENAPAX [Suspect]
     Indication: PROPHYLAXIS AGAINST TRANSPLANT REJECTION

REACTIONS (12)
  - COMPLICATIONS OF TRANSPLANTED KIDNEY [None]
  - CULTURE URINE POSITIVE [None]
  - ENTEROCOCCAL INFECTION [None]
  - EPIGASTRIC DISCOMFORT [None]
  - NEPHRECTOMY [None]
  - PERITONEAL DIALYSIS [None]
  - PERITONEAL EFFUSION [None]
  - RENAL CORTICAL NECROSIS [None]
  - SEPSIS [None]
  - SEPTIC SHOCK [None]
  - TENDERNESS [None]
  - THROMBOTIC THROMBOCYTOPENIC PURPURA [None]
